FAERS Safety Report 14900165 (Version 2)
Quarter: 2021Q3

REPORT INFORMATION
  Report Type: Other
  Country: JP (occurrence: JP)
  Receive Date: 20180516
  Receipt Date: 20210817
  Transmission Date: 20211014
  Serious: Yes (Death, Other)
  Sender: FDA-Public Use
  Company Number: JP-ROCHE-2120453

PATIENT
  Age: 56 Year
  Sex: Female
  Weight: 50 kg

DRUGS (5)
  1. MYCOPHENOLATE MOFETIL. [Concomitant]
     Active Substance: MYCOPHENOLATE MOFETIL
     Route: 048
     Dates: start: 20140304
  2. RITUXIMAB. [Suspect]
     Active Substance: RITUXIMAB
     Indication: IMMUNE TOLERANCE INDUCTION
     Route: 041
     Dates: start: 20140225, end: 20140225
  3. LOXONIN [Concomitant]
     Active Substance: LOXOPROFEN SODIUM
     Indication: PREMEDICATION
     Route: 048
     Dates: start: 20140225, end: 20140225
  4. TACROLIMUS MONOHYDRATE [Concomitant]
     Active Substance: TACROLIMUS
     Indication: IMMUNE TOLERANCE INDUCTION
     Route: 048
     Dates: start: 20140304
  5. POLARAMINE [Concomitant]
     Active Substance: DEXCHLORPHENIRAMINE MALEATE
     Indication: PREMEDICATION
     Route: 048
     Dates: start: 20140225, end: 20140225

REACTIONS (7)
  - Hepatic encephalopathy [Recovered/Resolved]
  - Cytomegalovirus test positive [Recovered/Resolved]
  - Pyrexia [Recovered/Resolved]
  - Anaemia [Recovering/Resolving]
  - Hypotension [Recovered/Resolved]
  - Off label use [Unknown]
  - Death [Fatal]

NARRATIVE: CASE EVENT DATE: 20140310
